FAERS Safety Report 16352993 (Version 1)
Quarter: 2019Q2

REPORT INFORMATION
  Report Type: Spontaneous
  Country: PL (occurrence: PL)
  Receive Date: 20190524
  Receipt Date: 20190524
  Transmission Date: 20190711
  Serious: Yes (Death, Hospitalization, Other)
  Sender: FDA-Public Use
  Company Number: PL-AUROBINDO-AUR-APL-2019-028909

PATIENT

DRUGS (15)
  1. FUROSEMIDE. [Concomitant]
     Active Substance: FUROSEMIDE
     Dosage: UNK
     Route: 042
     Dates: end: 20190324
  2. REMODULIN [Concomitant]
     Active Substance: TREPROSTINIL
     Indication: PULMONARY ARTERIAL HYPERTENSION
     Dosage: UNK, (60 NG/KG, PER MIN)
     Route: 065
     Dates: start: 2016
  3. HYGROTON [Concomitant]
     Active Substance: CHLORTHALIDONE
     Indication: HEART DISEASE CONGENITAL
     Dosage: 50 MILLIGRAM, DAILY (50 MG, QD)
     Route: 048
     Dates: start: 201810
  4. THIETHYLPERAZINE MALEATE [Concomitant]
     Active Substance: THIETHYLPERAZINE MALEATE
     Indication: PRODUCT USED FOR UNKNOWN INDICATION
     Dosage: 6.5 MILLIGRAM (6.5 MG)
     Route: 065
     Dates: start: 201810
  5. VELETRI [Suspect]
     Active Substance: EPOPROSTENOL
     Indication: PULMONARY ARTERIAL HYPERTENSION
     Dosage: UNK, (56 NG/KG, PER MIN)
     Route: 042
     Dates: start: 201612
  6. TORASEMIDE [Concomitant]
     Active Substance: TORSEMIDE
     Indication: HEART DISEASE CONGENITAL
     Dosage: 100 MILLIGRAM, DAILY (100 MG, QD)
     Route: 048
     Dates: start: 201710
  7. FUROSEMIDE. [Concomitant]
     Active Substance: FUROSEMIDE
     Indication: HEART DISEASE CONGENITAL
     Dosage: 60 MILLIGRAM, DAILY (20 MG, TID)
     Route: 042
     Dates: start: 201810
  8. ALDACTONE [Concomitant]
     Active Substance: SPIRONOLACTONE
     Indication: PRODUCT USED FOR UNKNOWN INDICATION
     Dosage: 50 MILLIGRAM (50 MG)
     Route: 042
     Dates: start: 201810
  9. OPSUMIT [Suspect]
     Active Substance: MACITENTAN
     Indication: PULMONARY ARTERIAL HYPERTENSION
     Dosage: 10 MILLIGRAM, DAILY (10 MG, OD)
     Route: 048
     Dates: start: 20130228
  10. MIRTAZAPINE. [Concomitant]
     Active Substance: MIRTAZAPINE
     Indication: PRODUCT USED FOR UNKNOWN INDICATION
     Dosage: 45 MILLIGRAM (45 MG)
     Route: 065
     Dates: start: 201810
  11. SPIRONOL [Concomitant]
     Active Substance: SPIRONOLACTONE
     Indication: HEART DISEASE CONGENITAL
     Dosage: 50 MILLIGRAM, DAILY (50 MG, QD)
     Route: 042
     Dates: start: 201710
  12. ALLOPURINOL. [Concomitant]
     Active Substance: ALLOPURINOL
     Indication: PRODUCT USED FOR UNKNOWN INDICATION
     Dosage: 300 MILLIGRAM (300 MG)
     Route: 048
     Dates: start: 2015
  13. SILDENAFIL. [Suspect]
     Active Substance: SILDENAFIL
     Indication: PULMONARY ARTERIAL HYPERTENSION
     Dosage: 60 MILLIGRAM, DAILY (20 MG, TID)
     Route: 048
     Dates: start: 2013
  14. IVABRADINE [Concomitant]
     Active Substance: IVABRADINE
     Indication: PRODUCT USED FOR UNKNOWN INDICATION
     Dosage: 15 MILLIGRAM, DAILY (7.5 MG, BID)
     Route: 048
     Dates: start: 201710
  15. BOSENTAN. [Suspect]
     Active Substance: BOSENTAN
     Indication: PULMONARY ARTERIAL HYPERTENSION
     Dosage: UNK
     Route: 048
     Dates: start: 2013

REACTIONS (19)
  - Sinus tachycardia [Fatal]
  - Pyrexia [Fatal]
  - Tachypnoea [Fatal]
  - Pulmonary oedema [Fatal]
  - Concomitant disease aggravated [Fatal]
  - Cyanosis central [Fatal]
  - Oxygen saturation decreased [Fatal]
  - Cyanosis [Fatal]
  - Weight increased [Fatal]
  - Hypokalaemia [Unknown]
  - Haemoptysis [Unknown]
  - Pneumonia [Fatal]
  - Cardiac failure chronic [Fatal]
  - Respiratory arrest [Fatal]
  - Pulseless electrical activity [Fatal]
  - Abdominal distension [Fatal]
  - Dyspnoea [Fatal]
  - Exercise tolerance decreased [Fatal]
  - Right ventricular failure [Fatal]

NARRATIVE: CASE EVENT DATE: 201803
